FAERS Safety Report 8923635 (Version 1)
Quarter: 2012Q4

REPORT INFORMATION
  Report Type: Spontaneous
  Country: US (occurrence: None)
  Receive Date: 20121109
  Receipt Date: 20121109
  Transmission Date: 20130627
  Serious: Yes (Other)
  Sender: FDA-Public Use
  Company Number: 2012S1000508

PATIENT
  Age: 57 Year
  Sex: Male

DRUGS (1)
  1. CUBICIN [Suspect]
     Indication: STAPHYLOCOCCAL INFECTION
     Dosage: U U; UNK; U
     Dates: start: 201112, end: 201201

REACTIONS (2)
  - Neuropathy peripheral [None]
  - Burning sensation [None]
